FAERS Safety Report 17139476 (Version 1)
Quarter: 2019Q4

REPORT INFORMATION
  Report Type: Spontaneous
  Country: US (occurrence: US)
  Receive Date: 20191210
  Receipt Date: 20191210
  Transmission Date: 20200122
  Serious: Yes (Other)
  Sender: FDA-Public Use
  Company Number: None

PATIENT
  Age: 36 Year
  Sex: Female
  Weight: 77.4 kg

DRUGS (1)
  1. ORILISSA [Suspect]
     Active Substance: ELAGOLIX SODIUM
     Indication: ENDOMETRIOSIS
     Dosage: ?          QUANTITY:28 TABLET(S);?
     Route: 048
     Dates: start: 20191112, end: 20191209

REACTIONS (9)
  - Emotional distress [None]
  - Dissociation [None]
  - Anxiety [None]
  - Tremor [None]
  - Mania [None]
  - Depression [None]
  - Paraesthesia [None]
  - Self-injurious ideation [None]
  - Drug ineffective [None]

NARRATIVE: CASE EVENT DATE: 20191130
